FAERS Safety Report 5473380-6 (Version None)
Quarter: 2007Q3

REPORT INFORMATION
  Report Type: 
  Country: None (occurrence: None)
  Receive Date: 20070824
  Receipt Date: 20070718
  Transmission Date: 20080115
  Serious: Yes (Hospitalization)
  Sender: FDA-Public Use
  Company Number: WAES 0707USA03120

PATIENT
  Age: 50 Year
  Sex: Female

DRUGS (3)
  1. VYTORIN [Suspect]
     Indication: HYPERLIPIDAEMIA
     Dosage: 10-40 MG DAILY; PO
     Route: 048
     Dates: start: 20070601, end: 20070701
  2. ZOCOR [Suspect]
     Indication: HYPERLIPIDAEMIA
     Dosage: 40 MG DAILY; PO
     Route: 048
  3. NIACIN [Concomitant]

REACTIONS (1)
  - RHABDOMYOLYSIS [None]
